FAERS Safety Report 17795738 (Version 2)
Quarter: 2020Q2

REPORT INFORMATION
  Report Type: Spontaneous
  Country: CZ (occurrence: CZ)
  Receive Date: 20200516
  Receipt Date: 20200618
  Transmission Date: 20200714
  Serious: Yes (Other)
  Sender: FDA-Public Use
  Company Number: NVSC2020CZ130487

PATIENT
  Age: 70 Year
  Sex: Female

DRUGS (3)
  1. PAZOPANIB [Suspect]
     Active Substance: PAZOPANIB
     Dosage: 200 MG, QD
     Route: 065
     Dates: start: 201906
  2. PAZOPANIB [Suspect]
     Active Substance: PAZOPANIB
     Dosage: 400 MG, QD
     Route: 065
     Dates: start: 201906
  3. PAZOPANIB [Suspect]
     Active Substance: PAZOPANIB
     Indication: UTERINE LEIOMYOSARCOMA
     Dosage: 800 MG, QD
     Route: 065
     Dates: start: 201812

REACTIONS (4)
  - Diarrhoea [Recovering/Resolving]
  - Hypokalaemia [Unknown]
  - Frequent bowel movements [Recovering/Resolving]
  - Abnormal faeces [Unknown]

NARRATIVE: CASE EVENT DATE: 2019
